FAERS Safety Report 8317809-4 (Version None)
Quarter: 2012Q2

REPORT INFORMATION
  Report Type: 
  Country: None (occurrence: None)
  Receive Date: 20120427
  Receipt Date: 20120420
  Transmission Date: 20120825
  Serious: Yes (Hospitalization)
  Sender: FDA-Public Use
  Company Number: US-JNJFOC-20120410260

PATIENT
  Age: 42 Year
  Sex: Male
  Weight: 99.79 kg

DRUGS (3)
  1. UNKNOWN MEDICATION [Concomitant]
     Route: 065
  2. NEOSPORIN [Suspect]
     Indication: LIMB INJURY
     Dosage: HALF DOLLAR SIZE AMOUNT, ONCE OR TWICE PER DAY
     Route: 061
  3. VANCOMYCIN [Suspect]
     Indication: WOUND SECRETION
     Dosage: EVERY 8 HOURS
     Route: 042

REACTIONS (6)
  - INCORRECT DRUG ADMINISTRATION DURATION [None]
  - WOUND SECRETION [None]
  - SWELLING [None]
  - OFF LABEL USE [None]
  - PAIN [None]
  - RASH ERYTHEMATOUS [None]
